FAERS Safety Report 23256484 (Version 1)
Quarter: 2023Q4

REPORT INFORMATION
  Report Type: Spontaneous
  Country: FR (occurrence: FR)
  Receive Date: 20231204
  Receipt Date: 20231204
  Transmission Date: 20240110
  Serious: Yes (Death, Hospitalization, Other)
  Sender: FDA-Public Use
  Company Number: FR-AFSSAPS-CN2023001087

PATIENT
  Age: 72 Year
  Sex: Male
  Weight: 121 kg

DRUGS (1)
  1. METFORMIN [Suspect]
     Active Substance: METFORMIN HYDROCHLORIDE
     Indication: Type 2 diabetes mellitus
     Dosage: 1 GRAM, 3 TIMES A DAY
     Route: 048
     Dates: end: 20231112

REACTIONS (2)
  - Lactic acidosis [Fatal]
  - Accidental overdose [Fatal]

NARRATIVE: CASE EVENT DATE: 20231110
